FAERS Safety Report 12441248 (Version 2)
Quarter: 2016Q3

REPORT INFORMATION
  Report Type: Spontaneous
  Country: JP (occurrence: JP)
  Receive Date: 20160607
  Receipt Date: 20160712
  Transmission Date: 20161109
  Serious: Yes (Other)
  Sender: FDA-Public Use
  Company Number: JP-AMGEN-JPNSP2016071823

PATIENT
  Age: 80 Year
  Sex: Female

DRUGS (8)
  1. RANMARK [Suspect]
     Active Substance: DENOSUMAB
     Indication: METASTASES TO BONE
  2. ENDOXAN [Concomitant]
     Active Substance: CYCLOPHOSPHAMIDE
     Dosage: UNK
  3. DOXIFLURIDINE [Concomitant]
     Active Substance: DOXIFLURIDINE
     Indication: METASTASES TO LYMPH NODES
     Dosage: UNK
     Route: 065
     Dates: start: 200608, end: 201303
  4. MARUYAMA VACCINE [Concomitant]
     Indication: METASTASES TO LYMPH NODES
     Dosage: UNK
     Route: 065
     Dates: start: 201302
  5. XELODA [Concomitant]
     Active Substance: CAPECITABINE
     Dosage: UNK
  6. DOXIFLURIDINE [Concomitant]
     Active Substance: DOXIFLURIDINE
     Indication: METASTASES TO BONE
  7. MARUYAMA VACCINE [Concomitant]
     Indication: METASTASES TO BONE
  8. RANMARK [Suspect]
     Active Substance: DENOSUMAB
     Indication: METASTASES TO LYMPH NODES
     Dosage: UNK
     Route: 065
     Dates: start: 201205

REACTIONS (1)
  - Osteonecrosis of jaw [Unknown]
